FAERS Safety Report 7820112-X (Version None)
Quarter: 2011Q4

REPORT INFORMATION
  Report Type: 
  Country: None (occurrence: None)
  Receive Date: 20111018
  Receipt Date: 20111005
  Transmission Date: 20120403
  Serious: Yes (Other)
  Sender: FDA-Public Use
  Company Number: CA-JNJFOC-20111006981

PATIENT
  Sex: Male

DRUGS (5)
  1. SEROQUEL XR [Concomitant]
  2. REMICADE [Suspect]
     Indication: CROHN'S DISEASE
     Route: 042
     Dates: start: 20100901
  3. VENLAFAXINE [Concomitant]
  4. OTHER THERAPEUTIC MEDICATION [Concomitant]
  5. TYLENOL W/ CODEINE NO. 3 [Concomitant]

REACTIONS (2)
  - STAPHYLOCOCCAL INFECTION [None]
  - LACERATION [None]
